FAERS Safety Report 8246362-9 (Version None)
Quarter: 2012Q1

REPORT INFORMATION
  Report Type: 
  Country: None (occurrence: None)
  Receive Date: 20120329
  Receipt Date: 20120329
  Transmission Date: 20120608
  Serious: Yes (Hospitalization)
  Sender: FDA-Public Use
  Company Number: None

PATIENT
  Sex: Female
  Weight: 85.09 kg

DRUGS (5)
  1. TAXOL [Suspect]
     Dosage: 348 MG
  2. BENICAR [Concomitant]
  3. CARBOPLATIN [Suspect]
     Dosage: 447 MG
  4. SPIRONOLACTONE [Concomitant]
  5. AMIODIPINE [Concomitant]

REACTIONS (4)
  - NAUSEA [None]
  - SYNCOPE [None]
  - DIARRHOEA [None]
  - VOMITING [None]
